FAERS Safety Report 23746894 (Version 2)
Quarter: 2024Q2

REPORT INFORMATION
  Report Type: Spontaneous
  Country: US (occurrence: US)
  Receive Date: 20240416
  Receipt Date: 20240513
  Transmission Date: 20240716
  Serious: Yes (Other)
  Sender: FDA-Public Use
  Company Number: US-PRESTIGE-202404-US-001081

PATIENT
  Sex: Female

DRUGS (2)
  1. LUDENS WILD CHERRY THROAT DROPS [Suspect]
     Active Substance: PECTIN
     Indication: Oropharyngeal pain
     Dosage: USING THROUGHOUT THE DAY
     Route: 048
  2. LUDENS WILD CHERRY THROAT DROPS [Suspect]
     Active Substance: PECTIN
     Route: 048

REACTIONS (2)
  - Tooth fracture [Not Recovered/Not Resolved]
  - Wrong technique in product usage process [Unknown]
